FAERS Safety Report 8396101-6 (Version None)
Quarter: 2012Q2

REPORT INFORMATION
  Report Type: 
  Country: None (occurrence: None)
  Receive Date: 20120530
  Receipt Date: 20120522
  Transmission Date: 20120825
  Serious: Yes (Life-Threatening)
  Sender: FDA-Public Use
  Company Number: FR-ROCHE-1071406

PATIENT
  Sex: Female

DRUGS (9)
  1. TAMIFLU [Suspect]
     Indication: PRODUCT USED FOR UNKNOWN INDICATION
     Route: 048
     Dates: start: 20120413, end: 20120417
  2. CEFTRIAXONE [Suspect]
     Indication: PRODUCT USED FOR UNKNOWN INDICATION
     Route: 042
     Dates: start: 20120414, end: 20120418
  3. OFLOXACIN [Suspect]
     Indication: PRODUCT USED FOR UNKNOWN INDICATION
     Route: 042
     Dates: start: 20120414, end: 20120418
  4. FLAGYL [Suspect]
     Indication: PRODUCT USED FOR UNKNOWN INDICATION
     Route: 048
     Dates: start: 20120414, end: 20120424
  5. LOVENOX [Concomitant]
  6. ACUPAN [Concomitant]
  7. TRAMADOL HCL [Concomitant]
     Dates: end: 20120416
  8. DOXYCYCLINE [Concomitant]
  9. NEXIUM [Concomitant]

REACTIONS (1)
  - RHABDOMYOLYSIS [None]
